FAERS Safety Report 13802419 (Version 1)
Quarter: 2017Q3

REPORT INFORMATION
  Report Type: Spontaneous
  Country: JP (occurrence: JP)
  Receive Date: 20170728
  Receipt Date: 20170728
  Transmission Date: 20171127
  Serious: Yes (Life-Threatening, Hospitalization, Other)
  Sender: FDA-Public Use
  Company Number: JP-ALVOGEN-2017-ALVOGEN-092824

PATIENT
  Age: 40 Year
  Sex: Female
  Weight: 49 kg

DRUGS (3)
  1. BENZYLPENICILLIN [Suspect]
     Active Substance: PENICILLIN G
     Indication: TOXIC SHOCK SYNDROME STREPTOCOCCAL
     Dosage: THE ANTIBACTERIAL AGENT WAS CHANGED TO PCG FROM THE 2ND DAY OF HOSPITALIZATION.
  2. CLINDAMYCIN. [Suspect]
     Active Substance: CLINDAMYCIN
     Indication: TOXIC SHOCK SYNDROME STREPTOCOCCAL
     Dosage: CLDM WAS USED CONCOMITANTLY FROM 4TH DAY OF HOSPITALIZATION.
  3. CLINDAMYCIN. [Suspect]
     Active Substance: CLINDAMYCIN
     Indication: TOXIC SHOCK SYNDROME STREPTOCOCCAL
     Dosage: FROM THE 2ND DAY OF HOSPITALISATION FOR PCG AND FROM THE 4TH DAY OF HOSPITALISATION FOR CLDM

REACTIONS (6)
  - Pyrexia [Unknown]
  - Traumatic lung injury [Unknown]
  - Acute kidney injury [Recovering/Resolving]
  - Rash [Unknown]
  - Disseminated intravascular coagulation [Unknown]
  - Computerised tomogram thorax abnormal [Unknown]
